FAERS Safety Report 7532285-7 (Version None)
Quarter: 2011Q2

REPORT INFORMATION
  Report Type: 
  Country: None (occurrence: None)
  Receive Date: 20110601
  Receipt Date: 20110601
  Transmission Date: 20111010
  Serious: Yes (Disabling)
  Sender: FDA-Public Use
  Company Number: 1022556-2011-00013

PATIENT
  Sex: Female

DRUGS (1)
  1. ICY HOT NO MESS APPLICATOR 2.5 OZ [Suspect]
     Indication: MYALGIA
     Dosage: TOPICAL
     Route: 061

REACTIONS (2)
  - SCAR [None]
  - THERMAL BURN [None]
